FAERS Safety Report 9504741 (Version 2)
Quarter: 2013Q3

REPORT INFORMATION
  Report Type: Spontaneous
  Country: US (occurrence: CA)
  Receive Date: 20130906
  Receipt Date: 20130906
  Transmission Date: 20140515
  Serious: Yes (Other)
  Sender: FDA-Public Use
  Company Number: US-SANOFI-AVENTIS-2013SA039393

PATIENT
  Age: 60 Year
  Sex: Female

DRUGS (15)
  1. ARAVA [Suspect]
  2. ORENCIA [Suspect]
     Indication: RHEUMATOID ARTHRITIS
     Dosage: FREQUENCY: EVERY FOUR WEEKS
     Route: 042
     Dates: start: 20110714, end: 20111102
  3. METHOTREXATE [Suspect]
     Dosage: 8 TABLETS WEEKLY
  4. CANDESARTAN CILEXETIL/HYDROCHLOROTHIAZIDE [Concomitant]
  5. OMEPRAZOLE [Concomitant]
  6. SYNTHROID [Concomitant]
  7. ACETYLSALICYLIC ACID [Concomitant]
  8. PLAQUENIL [Concomitant]
  9. FOLIC ACID [Concomitant]
  10. CARBAMAZEPINE [Concomitant]
  11. CITALOPRAM [Concomitant]
  12. BENZATROPINE [Concomitant]
  13. RISPERIDONE [Concomitant]
  14. FLUPENTHIXOL DIHYDROCHLORIDE [Concomitant]
  15. BUPROPION [Concomitant]

REACTIONS (2)
  - Tooth infection [Not Recovered/Not Resolved]
  - Cystitis [Not Recovered/Not Resolved]
